FAERS Safety Report 6895365-5 (Version None)
Quarter: 2010Q3

REPORT INFORMATION
  Report Type: 
  Country: None (occurrence: None)
  Receive Date: 20100730
  Receipt Date: 20100730
  Transmission Date: 20110219
  Serious: Yes (Death, Hospitalization)
  Sender: FDA-Public Use
  Company Number: None

PATIENT
  Sex: Male
  Weight: 77 kg

DRUGS (1)
  1. MEMANTINE HCL [Suspect]
     Dosage: 600 MG

REACTIONS (3)
  - COUGH [None]
  - DISEASE PROGRESSION [None]
  - DYSPNOEA [None]
